FAERS Safety Report 9349113 (Version 2)
Quarter: 2013Q4

REPORT INFORMATION
  Report Type: Report from Study
  Country: JP (occurrence: JP)
  Receive Date: 20130614
  Receipt Date: 20131107
  Transmission Date: 20140711
  Serious: Yes (Other)
  Sender: FDA-Public Use
  Company Number: JP-009507513-1305JPN005756

PATIENT
  Age: 43 Year
  Sex: Female
  Weight: 49 kg

DRUGS (8)
  1. TEMOZOLOMIDE [Suspect]
     Indication: ANAPLASTIC ASTROCYTOMA
     Dosage: 75 MG/SQM
     Route: 048
     Dates: start: 20061010, end: 20061120
  2. TEMOZOLOMIDE [Suspect]
     Dosage: 150 MG/SQM, QD
     Route: 048
     Dates: start: 20070101, end: 20070105
  3. TEMOZOLOMIDE [Suspect]
     Dosage: 200 MG/SQM
     Route: 048
     Dates: start: 20070129
  4. BAKTAR [Concomitant]
     Dosage: DAILY DOSE UNKNOWN
     Route: 048
     Dates: start: 20070809, end: 20100318
  5. ALEVIATIN [Concomitant]
     Dosage: DAILY DOSE UNKNOWN/ THE DAY  OF THE BEGINNING OF DOSAGE OF ALEVIATIN: BEFORE 10-OCT-2010
     Route: 048
  6. RINDERON (BETAMETHASONE) [Concomitant]
     Dosage: DAILY DOSE UNKNOWN/THE DAY OF THE BEGINNING OF DOSAGE OF RINDERON BEFORE 10-OCT-2006
     Route: 048
     Dates: end: 20090506
  7. GASTER [Concomitant]
     Indication: PROPHYLAXIS
     Dosage: DAILY DOSE UNKNOWN/THE DAY OF THE BEGINNING OF DOSAGE OF GASTER: BEFORE 10-OCT-2006
     Route: 048
  8. PREDNISOLONE [Concomitant]
     Dosage: UNK
     Route: 048
     Dates: start: 20090507, end: 20091030

REACTIONS (12)
  - VIth nerve paralysis [Recovered/Resolved]
  - Blood cholesterol increased [Recovered/Resolved]
  - White blood cell count decreased [Recovered/Resolved]
  - White blood cell count decreased [Recovered/Resolved]
  - White blood cell count decreased [Recovered/Resolved]
  - White blood cell count decreased [Recovered/Resolved]
  - White blood cell count decreased [Recovered/Resolved]
  - Lymphocyte count decreased [Recovered/Resolved]
  - Lymphocyte count decreased [Recovered/Resolved]
  - Gamma-glutamyltransferase increased [Recovered/Resolved]
  - Gamma-glutamyltransferase increased [Recovered/Resolved]
  - Anaemia [Recovered/Resolved]
